FAERS Safety Report 4911144-X (Version None)
Quarter: 2006Q1

REPORT INFORMATION
  Report Type: 
  Country: None (occurrence: None)
  Receive Date: 20060214
  Receipt Date: 20060120
  Transmission Date: 20060701
  Serious: Yes (Other)
  Sender: FDA-Public Use
  Company Number: US-JNJFOC-20030602863

PATIENT
  Sex: Female
  Weight: 53.07 kg

DRUGS (11)
  1. REMICADE [Suspect]
     Route: 042
  2. REMICADE [Suspect]
     Indication: RHEUMATOID ARTHRITIS
     Route: 042
  3. REMICADE [Suspect]
     Route: 042
  4. FOSAMAX [Concomitant]
     Indication: OSTEOPOROSIS
  5. DELOBID [Concomitant]
  6. UNITHROID [Concomitant]
  7. UNITHROID [Concomitant]
  8. LEVOTHROID [Concomitant]
  9. LOVASTATIN [Concomitant]
  10. CALCIUM GLUCONATE [Concomitant]
  11. VIOXX [Concomitant]

REACTIONS (18)
  - ARTHRALGIA [None]
  - BACK PAIN [None]
  - CULTURE POSITIVE [None]
  - GRAM STAIN POSITIVE [None]
  - HYPOAESTHESIA [None]
  - INFUSION RELATED REACTION [None]
  - LOW DENSITY LIPOPROTEIN INCREASED [None]
  - LUNG INFECTION [None]
  - MYCOBACTERIUM AVIUM COMPLEX INFECTION [None]
  - MYOCARDIAL INFARCTION [None]
  - NASAL POLYPS [None]
  - OSTEOARTHRITIS [None]
  - PAIN IN EXTREMITY [None]
  - PNEUMONIA [None]
  - PRURITUS [None]
  - PSORIASIS [None]
  - SPINAL COLUMN STENOSIS [None]
  - SPONDYLOLISTHESIS [None]
